FAERS Safety Report 5524794-7 (Version None)
Quarter: 2007Q4

REPORT INFORMATION
  Report Type: 
  Country: None (occurrence: None)
  Receive Date: 20071116
  Receipt Date: 20071102
  Transmission Date: 20080405
  Serious: Yes (Disabling)
  Sender: FDA-Public Use
  Company Number: 163746ISR

PATIENT
  Age: 34 Year
  Sex: Female

DRUGS (4)
  1. PROPRANOLOL [Suspect]
     Dosage: (80 MG) ORAL; (40 MG) ORAL
     Route: 048
     Dates: start: 20030101, end: 20030101
  2. PROPRANOLOL [Suspect]
     Dosage: (80 MG) ORAL; (40 MG) ORAL
     Route: 048
     Dates: end: 20030101
  3. OLANZAPINE [Suspect]
     Dosage: (5 MG) ORAL
     Route: 048
     Dates: end: 19950101
  4. OLANZAPINE [Suspect]
     Dosage: (5 MG) ORAL
     Route: 048
     Dates: start: 19950101

REACTIONS (3)
  - ALOPECIA [None]
  - TINNITUS [None]
  - WEIGHT INCREASED [None]
